FAERS Safety Report 10757017 (Version 2)
Quarter: 2015Q1

REPORT INFORMATION
  Report Type: Spontaneous
  Country: JP (occurrence: JP)
  Receive Date: 20150203
  Receipt Date: 20150206
  Transmission Date: 20150721
  Serious: Yes (Hospitalization, Other)
  Sender: FDA-Public Use
  Company Number: JP-009507513-1502JPN000055

PATIENT
  Age: 86 Year
  Sex: Male

DRUGS (9)
  1. DEXMEDETOMIDINE HYDROCHLORIDE. [Suspect]
     Active Substance: DEXMEDETOMIDINE HYDROCHLORIDE
     Dosage: 0.4 MICROGRAM/KG/HR
     Route: 042
  2. THEOPHYLLINE [Concomitant]
     Active Substance: THEOPHYLLINE ANHYDROUS
  3. VALACYCLOVIR HYDROCHLORIDE. [Concomitant]
     Active Substance: VALACYCLOVIR HYDROCHLORIDE
     Dosage: ORALLY FOR 1 WEEK
     Route: 048
  4. BLONANSERIN [Concomitant]
     Active Substance: BLONANSERIN
     Dosage: 4 MG, PER DAY
     Route: 048
  5. INSULIN [Concomitant]
     Active Substance: INSULIN NOS
     Indication: TYPE 2 DIABETES MELLITUS
  6. ONOACT [Suspect]
     Active Substance: LANDIOLOL HYDROCHLORIDE
     Indication: STRESS
     Dosage: 10 MICROGRAM/KG/MIN
     Route: 041
  7. PREDNISOLONE. [Concomitant]
     Active Substance: PREDNISOLONE
     Route: 048
  8. GLACTIV [Suspect]
     Active Substance: SITAGLIPTIN
     Indication: TYPE 2 DIABETES MELLITUS
     Dosage: 50 MG, ONCE A DAY
     Route: 048
  9. BUPIVACAINE HYDROCHLORIDE. [Concomitant]
     Active Substance: BUPIVACAINE HYDROCHLORIDE
     Dosage: 3.0 ML PER DAY

REACTIONS (7)
  - Bone pain [Unknown]
  - Restlessness [Unknown]
  - Sedation [Unknown]
  - Fall [Unknown]
  - Delirium [Unknown]
  - Herpes zoster [Unknown]
  - Femur fracture [Unknown]
